FAERS Safety Report 9330897 (Version 1)
Quarter: 2013Q2

REPORT INFORMATION
  Report Type: Spontaneous
  Country: CA (occurrence: None)
  Receive Date: 20130531
  Receipt Date: 20130531
  Transmission Date: 20140414
  Serious: Yes (Life-Threatening)
  Sender: FDA-Public Use
  Company Number: CA-ALSI-201300130

PATIENT
  Age: 70 Year
  Sex: Female
  Weight: 66 kg

DRUGS (13)
  1. NITROUS OXIDE [Suspect]
  2. ALFENTA [Suspect]
  3. ATRACURIUM BESYLATE [Suspect]
  4. DROPERIDOL [Suspect]
  5. ETHRANE [Suspect]
  6. PENTOTHAL [Suspect]
  7. PRINIVIL [Suspect]
  8. PROPOFOL [Suspect]
  9. BECLOVENT (BECLOMETASONE DIPROPIONATE) [Concomitant]
  10. DIGOXIN [Concomitant]
  11. HUMULIN (INSULIN) [Concomitant]
  12. ISOPTINE (VERAPAMIL) [Concomitant]
  13. VENTOLINE (SALBUTAMOL) [Concomitant]

REACTIONS (5)
  - Angioedema [None]
  - Dyspnoea [None]
  - Feeling abnormal [None]
  - Glossodynia [None]
  - Swollen tongue [None]
